FAERS Safety Report 6286408-0 (Version None)
Quarter: 2009Q3

REPORT INFORMATION
  Report Type: 
  Country: None (occurrence: None)
  Receive Date: 20090728
  Receipt Date: 20090725
  Transmission Date: 20100115
  Serious: Yes (Other)
  Sender: FDA-Public Use
  Company Number: A0798695A

PATIENT
  Age: 60 Year
  Sex: Female

DRUGS (2)
  1. ALLI [Suspect]
     Indication: WEIGHT LOSS DIET
     Route: 048
  2. PAIN MEDICATION [Concomitant]

REACTIONS (3)
  - CUSHING'S SYNDROME [None]
  - CUSHINGOID [None]
  - THERAPEUTIC RESPONSE UNEXPECTED [None]
